FAERS Safety Report 16777796 (Version 2)
Quarter: 2019Q3

REPORT INFORMATION
  Report Type: Spontaneous
  Country: JP (occurrence: JP)
  Receive Date: 20190905
  Receipt Date: 20190926
  Transmission Date: 20191005
  Serious: Yes (Other)
  Sender: FDA-Public Use
  Company Number: PHJP2019JP011145

PATIENT
  Age: 46 Year
  Sex: Female

DRUGS (1)
  1. VOTRIENT [Suspect]
     Active Substance: PAZOPANIB HYDROCHLORIDE
     Indication: HAEMANGIOPERICYTOMA OF MENINGES
     Dosage: UNK
     Route: 048

REACTIONS (8)
  - Neuropathy peripheral [Unknown]
  - Rash [Unknown]
  - Haemangiopericytoma of meninges [Unknown]
  - Hepatic function abnormal [Unknown]
  - Blood lactate dehydrogenase increased [Recovering/Resolving]
  - Mass [Unknown]
  - C-reactive protein increased [Recovering/Resolving]
  - Malignant neoplasm progression [Unknown]
